FAERS Safety Report 15336663 (Version 2)
Quarter: 2018Q4

REPORT INFORMATION
  Report Type: Report from Study
  Country: None (occurrence: CO)
  Receive Date: 20180830
  Receipt Date: 20181120
  Transmission Date: 20190204
  Serious: Yes (Hospitalization, Other)
  Sender: FDA-Public Use
  Company Number: CO-ABBVIE-18S-036-2469739-00

PATIENT
  Sex: Male
  Weight: 52 kg

DRUGS (1)
  1. ZEMPLAR [Suspect]
     Active Substance: PARICALCITOL
     Indication: HYPERPARATHYROIDISM SECONDARY
     Route: 048
     Dates: start: 20180314, end: 20180728

REACTIONS (5)
  - Procedural pain [Unknown]
  - Infarction [Recovering/Resolving]
  - Pulmonary oedema [Unknown]
  - Dyspnoea [Unknown]
  - Condition aggravated [Unknown]

NARRATIVE: CASE EVENT DATE: 2018
